FAERS Safety Report 8494322-5 (Version None)
Quarter: 2012Q2

REPORT INFORMATION
  Report Type: 
  Country: None (occurrence: None)
  Receive Date: 20120405
  Receipt Date: 20090108
  Transmission Date: 20120825
  Serious: Yes (Other)
  Sender: FDA-Public Use
  Company Number: PHEH2009US00565

PATIENT
  Age: 76 Year
  Sex: Female

DRUGS (1)
  1. RECLAST [Suspect]
     Indication: OSTEOPOROSIS
     Dates: start: 20081215

REACTIONS (5)
  - FALL [None]
  - PAIN IN EXTREMITY [None]
  - BACK PAIN [None]
  - DYSSTASIA [None]
  - ABASIA [None]
